FAERS Safety Report 6564358-X (Version None)
Quarter: 2010Q1

REPORT INFORMATION
  Report Type: 
  Country: None (occurrence: None)
  Receive Date: 20100201
  Receipt Date: 20100122
  Transmission Date: 20100710
  Serious: Yes (Other)
  Sender: FDA-Public Use
  Company Number: US-JNJFOC-20100107786

PATIENT
  Age: 87 Year
  Sex: Female

DRUGS (2)
  1. RISPERIDONE [Suspect]
     Indication: AGITATION
     Route: 065
  2. RISPERIDONE [Suspect]
     Indication: PSYCHIATRIC SYMPTOM
     Route: 065

REACTIONS (1)
  - ELECTROCARDIOGRAM QT PROLONGED [None]
